FAERS Safety Report 22276065 (Version 1)
Quarter: 2023Q2

REPORT INFORMATION
  Report Type: Spontaneous
  Country: US (occurrence: US)
  Receive Date: 20230502
  Receipt Date: 20230502
  Transmission Date: 20230722
  Serious: No
  Sender: FDA-Public Use
  Company Number: US-AERIE-2023-000037

PATIENT

DRUGS (9)
  1. ROCKLATAN [Suspect]
     Active Substance: LATANOPROST\NETARSUDIL MESYLATE
     Indication: Glaucoma
     Dosage: 1 GTT, OU, QHS
     Route: 047
     Dates: start: 202210
  2. COREG [Concomitant]
     Active Substance: CARVEDILOL
     Indication: Cardiac disorder
     Dosage: 1 DOSAGE FORM, BID
     Route: 065
     Dates: start: 200007
  3. DIGOXIN [Concomitant]
     Active Substance: DIGOXIN
     Indication: Cardiac disorder
     Dosage: 1 DOSAGE FORM, QD
     Route: 065
     Dates: start: 200007
  4. VASOTEC [Concomitant]
     Active Substance: ENALAPRIL MALEATE
     Indication: Cardiac disorder
     Dosage: 1 DOSAGE FORM, BID
     Route: 065
     Dates: start: 200007
  5. CRESTOR [Concomitant]
     Active Substance: ROSUVASTATIN CALCIUM
     Indication: Blood cholesterol
     Dosage: 1 DOSAGE FORM, QHS
     Route: 065
     Dates: start: 200807
  6. VITAMINS D3 [Concomitant]
     Indication: Vitamin D deficiency
     Dosage: 1 UNK, QD
     Dates: start: 200007
  7. MAGNESIUM [Concomitant]
     Active Substance: MAGNESIUM
     Indication: Cardiac disorder
     Dosage: 2 UNK, QD
     Route: 065
     Dates: start: 200007
  8. COENZYME Q10 [Concomitant]
     Active Substance: DIETARY SUPPLEMENT\UBIDECARENONE
     Indication: Cardiac disorder
     Dosage: 1 DOSAGE FORM, QD
     Route: 065
     Dates: start: 201007
  9. ASPIRIN [Concomitant]
     Active Substance: ASPIRIN
     Indication: Blood disorder
     Dosage: 1 DOSAGE FORM, QHS
     Route: 065
     Dates: start: 200007

REACTIONS (3)
  - Joint swelling [Not Recovered/Not Resolved]
  - Fall [Unknown]
  - Blepharitis [Not Recovered/Not Resolved]

NARRATIVE: CASE EVENT DATE: 20221206
